FAERS Safety Report 24927958 (Version 1)
Quarter: 2025Q1

REPORT INFORMATION
  Report Type: Spontaneous
  Country: CA (occurrence: None)
  Receive Date: 20250204
  Receipt Date: 20250204
  Transmission Date: 20250409
  Serious: Yes (Disabling)
  Sender: FDA-CTU
  Company Number: None

PATIENT
  Age: 29 Year
  Sex: Male
  Weight: 99 kg

DRUGS (9)
  1. CIPRALEX [Suspect]
     Active Substance: ESCITALOPRAM OXALATE
     Indication: Anxiety disorder
     Dosage: 1 TABLET DAILY ORAL
     Route: 048
  2. TADALAFIL [Concomitant]
     Active Substance: TADALAFIL
  3. SILDENAFIL [Concomitant]
     Active Substance: SILDENAFIL
  4. Centrum Men^s Multi-Vitamin Gummies [Concomitant]
  5. VITAMIN D3 [Concomitant]
     Active Substance: CHOLECALCIFEROL
  6. VITAMIN B12 [Concomitant]
     Active Substance: CYANOCOBALAMIN
  7. Omega 3/6 supplement [Concomitant]
  8. Maca root powder [Concomitant]
  9. Magnesium biglycinate supplement [Concomitant]

REACTIONS (9)
  - Sexual dysfunction [None]
  - Erectile dysfunction [None]
  - Electric shock sensation [None]
  - Anxiety [None]
  - Brain fog [None]
  - Sleep disorder [None]
  - Libido decreased [None]
  - Fatigue [None]
  - Cognitive disorder [None]

NARRATIVE: CASE EVENT DATE: 20160801
